FAERS Safety Report 9496337 (Version 1)
Quarter: 2013Q3

REPORT INFORMATION
  Report Type: Spontaneous
  Country: US (occurrence: US)
  Receive Date: 20130904
  Receipt Date: 20130904
  Transmission Date: 20140515
  Serious: Yes (Hospitalization)
  Sender: FDA-Public Use
  Company Number: US-SANOFI-AVENTIS-2013SA087100

PATIENT
  Age: 75 Year
  Sex: Female

DRUGS (3)
  1. LANTUS SOLOSTAR [Suspect]
     Indication: TYPE 2 DIABETES MELLITUS
     Dosage: DOSE:44 UNIT(S)
     Route: 058
  2. NOVOLOG [Suspect]
     Dosage: DOSE: 8 UNITS UIN THE MORNING AND 12 UNITS IN THE EVENING
     Route: 065
  3. SOLOSTAR [Concomitant]

REACTIONS (3)
  - Cardiac disorder [Unknown]
  - Rash pruritic [Unknown]
  - Glycosylated haemoglobin increased [Unknown]
